FAERS Safety Report 9801185 (Version 1)
Quarter: 2014Q1

REPORT INFORMATION
  Report Type: Spontaneous
  Country: US (occurrence: US)
  Receive Date: 20140107
  Receipt Date: 20140107
  Transmission Date: 20141002
  Serious: Yes (Death)
  Sender: FDA-Public Use
  Company Number: US-BAYER-2014-002579

PATIENT
  Age: 44 Year
  Sex: Male

DRUGS (6)
  1. DIPHENHYDRAMINE HYDROCHLORIDE [Suspect]
     Route: 048
  2. DIPHENHYDRAMINE HYDROCHLORIDE [Suspect]
     Route: 051
  3. METHADONE [Suspect]
     Route: 048
  4. METHADONE [Suspect]
     Route: 051
  5. ZOLPIDEM [Suspect]
     Route: 048
  6. ZOLPIDEM [Suspect]
     Route: 051

REACTIONS (1)
  - Drug abuse [Fatal]
